FAERS Safety Report 4494496-7 (Version None)
Quarter: 2004Q4

REPORT INFORMATION
  Report Type: 
  Country: None (occurrence: None)
  Receive Date: 20041102
  Receipt Date: 20041019
  Transmission Date: 20050328
  Serious: Yes (Hospitalization, Other)
  Sender: FDA-Public Use
  Company Number: USA-2004-0013180

PATIENT
  Age: 1 Year
  Sex: Female

DRUGS (2)
  1. CEFDITOREN PIVOXIL (SIMILAR TO NDA 21-222) (CEFDITOREN PIVOXIL) [Suspect]
     Indication: PHARYNGITIS
     Dosage: SEE TEXT, ORAL
     Route: 048
     Dates: start: 20030504, end: 20030504
  2. FLOMOX (CEFCAPENE PIVOXIL HYDROCHLORIDE) [Concomitant]

REACTIONS (10)
  - ALANINE AMINOTRANSFERASE INCREASED [None]
  - ASPARTATE AMINOTRANSFERASE INCREASED [None]
  - BLOOD KETONE BODY DECREASED [None]
  - CARNITINE DECREASED [None]
  - CONVULSION [None]
  - DEPRESSED LEVEL OF CONSCIOUSNESS [None]
  - HYPERAMMONAEMIA [None]
  - HYPOGLYCAEMIA [None]
  - PLATELET COUNT INCREASED [None]
  - WHITE BLOOD CELL COUNT INCREASED [None]
